FAERS Safety Report 9099898 (Version 1)
Quarter: 2013Q1

REPORT INFORMATION
  Report Type: Report from Study
  Country: US (occurrence: US)
  Receive Date: 20130214
  Receipt Date: 20130214
  Transmission Date: 20140127
  Serious: Yes (Hospitalization)
  Sender: FDA-Public Use
  Company Number: US-ROCHE-1190982

PATIENT
  Age: 41 Year
  Sex: Female
  Weight: 84.44 kg

DRUGS (6)
  1. HERCEPTIN [Suspect]
     Indication: BREAST CANCER
     Route: 042
     Dates: start: 20120706, end: 20120727
  2. HERCEPTIN [Suspect]
     Route: 042
     Dates: start: 20120831
  3. CARBOPLATIN [Concomitant]
     Route: 042
     Dates: start: 20120706, end: 20120727
  4. CARBOPLATIN [Concomitant]
     Route: 042
     Dates: start: 20120831, end: 20121128
  5. TAXOTERE [Concomitant]
     Route: 042
     Dates: start: 20120706, end: 20120727
  6. TAXOTERE [Concomitant]
     Route: 042
     Dates: start: 20120920, end: 20121128

REACTIONS (2)
  - Patient-device incompatibility [Recovered/Resolved]
  - Nausea [Recovered/Resolved]
